FAERS Safety Report 6598800-5 (Version None)
Quarter: 2010Q1

REPORT INFORMATION
  Report Type: 
  Country: None (occurrence: None)
  Receive Date: 20100224
  Receipt Date: 20100215
  Transmission Date: 20100710
  Serious: Yes (Other)
  Sender: FDA-Public Use
  Company Number: US-NOVOPROD-302531

PATIENT
  Sex: Female
  Weight: 60.771 kg

DRUGS (2)
  1. NOVOLOG MIX 70/30 [Suspect]
     Indication: TYPE 2 DIABETES MELLITUS
     Dosage: 34 UNITS QAM, 32 UNITS QPM
     Route: 058
     Dates: start: 20080201
  2. ANTIHYPERTENSIVES [Concomitant]
     Indication: HYPERTENSION
     Dosage: UNK, QD
     Route: 048

REACTIONS (2)
  - BLOOD GLUCOSE DECREASED [None]
  - PANCREATIC CARCINOMA [None]
